FAERS Safety Report 13465950 (Version 6)
Quarter: 2023Q1

REPORT INFORMATION
  Report Type: Report from Study
  Country: US (occurrence: US)
  Receive Date: 20170421
  Receipt Date: 20230225
  Transmission Date: 20230418
  Serious: Yes (Hospitalization, Other)
  Sender: FDA-Public Use
  Company Number: US-SHIRE-US201708614

PATIENT
  Age: 32 Year
  Sex: Male

DRUGS (16)
  1. TEDUGLUTIDE [Suspect]
     Active Substance: TEDUGLUTIDE
     Indication: Short-bowel syndrome
     Dosage: 0.05 MILLIGRAM/KILOGRAM
     Route: 058
     Dates: start: 20140326, end: 201704
  2. TEDUGLUTIDE [Suspect]
     Active Substance: TEDUGLUTIDE
     Indication: Short-bowel syndrome
     Dosage: 0.05 MILLIGRAM/KILOGRAM
     Route: 058
     Dates: start: 20140326, end: 201704
  3. TEDUGLUTIDE [Suspect]
     Active Substance: TEDUGLUTIDE
     Indication: Short-bowel syndrome
     Dosage: 0.05 MILLIGRAM/KILOGRAM
     Route: 058
     Dates: start: 20140326, end: 201704
  4. TEDUGLUTIDE [Suspect]
     Active Substance: TEDUGLUTIDE
     Indication: Short-bowel syndrome
     Dosage: 0.05 MILLIGRAM/KILOGRAM
     Route: 058
     Dates: start: 20140326, end: 201704
  5. TEDUGLUTIDE [Suspect]
     Active Substance: TEDUGLUTIDE
     Dosage: 1.1 MILLIGRAM, QD
     Route: 058
     Dates: start: 20220827
  6. TEDUGLUTIDE [Suspect]
     Active Substance: TEDUGLUTIDE
     Dosage: 1.1 MILLIGRAM, QD
     Route: 058
     Dates: start: 20220827
  7. TEDUGLUTIDE [Suspect]
     Active Substance: TEDUGLUTIDE
     Dosage: 1.1 MILLIGRAM, QD
     Route: 058
     Dates: start: 20220827
  8. TEDUGLUTIDE [Suspect]
     Active Substance: TEDUGLUTIDE
     Dosage: 1.1 MILLIGRAM, QD
     Route: 058
     Dates: start: 20220827
  9. TEDUGLUTIDE [Suspect]
     Active Substance: TEDUGLUTIDE
     Dosage: 1.10 MILLIGRAM, QD
     Route: 058
     Dates: start: 202208
  10. TEDUGLUTIDE [Suspect]
     Active Substance: TEDUGLUTIDE
     Dosage: 1.10 MILLIGRAM, QD
     Route: 058
     Dates: start: 202208
  11. TEDUGLUTIDE [Suspect]
     Active Substance: TEDUGLUTIDE
     Dosage: 1.10 MILLIGRAM, QD
     Route: 058
     Dates: start: 202208
  12. TEDUGLUTIDE [Suspect]
     Active Substance: TEDUGLUTIDE
     Dosage: 1.10 MILLIGRAM, QD
     Route: 058
     Dates: start: 202208
  13. TEDUGLUTIDE [Suspect]
     Active Substance: TEDUGLUTIDE
     Dosage: 1.10 MILLIGRAM, QD
     Route: 058
     Dates: start: 202208, end: 20230220
  14. TEDUGLUTIDE [Suspect]
     Active Substance: TEDUGLUTIDE
     Dosage: 1.10 MILLIGRAM, QD
     Route: 058
     Dates: start: 202208, end: 20230220
  15. TEDUGLUTIDE [Suspect]
     Active Substance: TEDUGLUTIDE
     Dosage: 1.10 MILLIGRAM, QD
     Route: 058
     Dates: start: 202208, end: 20230220
  16. TEDUGLUTIDE [Suspect]
     Active Substance: TEDUGLUTIDE
     Dosage: 1.10 MILLIGRAM, QD
     Route: 058
     Dates: start: 202208, end: 20230220

REACTIONS (8)
  - Vascular device infection [Unknown]
  - Weight decreased [Unknown]
  - Intestinal obstruction [Recovered/Resolved]
  - Cellulitis [Unknown]
  - Pain in extremity [Unknown]
  - Peripheral swelling [Unknown]
  - Limb injury [Unknown]
  - Flatulence [Unknown]

NARRATIVE: CASE EVENT DATE: 20170401
